FAERS Safety Report 21848232 (Version 1)
Quarter: 2023Q1

REPORT INFORMATION
  Report Type: Spontaneous
  Country: US (occurrence: None)
  Receive Date: 20230110
  Receipt Date: 20230110
  Transmission Date: 20230418
  Serious: Yes (Other)
  Sender: FDA-Public Use
  Company Number: None

PATIENT
  Age: 46 Year
  Sex: Female

DRUGS (1)
  1. MOUNJARO [Suspect]
     Active Substance: TIRZEPATIDE
     Dosage: OTHER FREQUENCY : WEEKLY INJECTION;?
     Route: 030
     Dates: start: 20221017

REACTIONS (2)
  - Follicular thyroid cancer [None]
  - Papillary thyroid cancer [None]

NARRATIVE: CASE EVENT DATE: 20221208
